FAERS Safety Report 4330062-1 (Version None)
Quarter: 2004Q1

REPORT INFORMATION
  Report Type: 
  Country: None (occurrence: None)
  Receive Date: 20040329
  Receipt Date: 20040318
  Transmission Date: 20041129
  Serious: Yes (Other)
  Sender: FDA-Public Use
  Company Number: HQWYE972918MAR04

PATIENT
  Age: 25 Year
  Sex: Male

DRUGS (3)
  1. PROTIUM (PANTOPRAZOLE, TABLET, DELAYED RELEASE) [Suspect]
     Indication: BACTERIAL INFECTION
     Dosage: 80 MG 1X PER 1 DAY; ORAL
     Route: 048
     Dates: start: 20031229, end: 20040105
  2. CLARITHROMYCIN [Suspect]
     Indication: BACTERIAL INFECTION
     Dosage: 100 MG 1X PER 1 DAY; ORAL
     Route: 048
     Dates: start: 20031229, end: 20040105
  3. PINAMOX (AMOXICILLIN TRIHYDRATE, ) [Suspect]
     Indication: BACTERIAL INFECTION
     Dosage: 2 G 1X PER 1 DAY; ORAL
     Route: 048
     Dates: start: 20031229, end: 20040105

REACTIONS (2)
  - DEPRESSION [None]
  - SUICIDE ATTEMPT [None]
